FAERS Safety Report 12708599 (Version 3)
Quarter: 2017Q2

REPORT INFORMATION
  Report Type: Spontaneous
  Country: US (occurrence: US)
  Receive Date: 20160901
  Receipt Date: 20170630
  Transmission Date: 20170830
  Serious: Yes (Death, Other)
  Sender: FDA-Public Use
  Company Number: US-PFIZER INC-2016411172

PATIENT
  Age: 69 Year
  Sex: Female

DRUGS (5)
  1. MESTINON [Concomitant]
     Active Substance: PYRIDOSTIGMINE BROMIDE
     Indication: MYASTHENIA GRAVIS
     Dosage: 60MG TABLET: 1/2 TABLET 30 MINUTES PRIOR TO MEALS OR IF THE PATIENT WAS GOING TO DO SOMETHING OR GO
  2. ERYTHROMYCIN. [Concomitant]
     Active Substance: ERYTHROMYCIN
     Indication: PYREXIA
     Dates: start: 20160725
  3. CALCIUM [Concomitant]
     Active Substance: CALCIUM
     Indication: VITAMIN SUPPLEMENTATION
     Dosage: 500 MG, DAILY
     Route: 048
  4. AMIDATE [Suspect]
     Active Substance: ETOMIDATE
     Dosage: UNK
     Dates: start: 20160728
  5. MESTINON [Concomitant]
     Active Substance: PYRIDOSTIGMINE BROMIDE
     Dosage: 1/4 AND 1/2 TABLET EVERY 6 HOURS

REACTIONS (2)
  - Asphyxia [Fatal]
  - Cardiac arrest [Fatal]

NARRATIVE: CASE EVENT DATE: 20160728
